FAERS Safety Report 6274324-X (Version None)
Quarter: 2009Q3

REPORT INFORMATION
  Report Type: 
  Country: None (occurrence: None)
  Receive Date: 20090720
  Receipt Date: 20090716
  Transmission Date: 20100115
  Serious: No
  Sender: FDA-Public Use
  Company Number: US-B.I. PHARMACEUTICALS,INC./RIDGEFIELD-2009-BP-08517BP

PATIENT
  Sex: Male

DRUGS (3)
  1. MICARDIS [Suspect]
     Dosage: 80 MG
     Route: 048
  2. CLONIDINE [Concomitant]
     Indication: HYPERTENSION
  3. ENALAPRIL MALEATE [Concomitant]

REACTIONS (2)
  - GASTRIC DISORDER [None]
  - NAUSEA [None]
